FAERS Safety Report 9780231 (Version 2)
Quarter: 2013Q4

REPORT INFORMATION
  Report Type: Spontaneous
  Country: GB (occurrence: GB)
  Receive Date: 20131223
  Receipt Date: 20131223
  Transmission Date: 20140711
  Serious: Yes (Life-Threatening, Hospitalization)
  Sender: FDA-Public Use
  Company Number: GB-CELGENEUS-167-21880-12063307

PATIENT
  Age: 46 Year
  Sex: Male
  Weight: 107 kg

DRUGS (9)
  1. REVLIMID [Suspect]
     Indication: PLASMA CELL MYELOMA
     Dosage: 25 MILLIGRAM
     Route: 048
     Dates: start: 20120601
  2. ELOTUZUMAB [Suspect]
     Indication: PLASMA CELL MYELOMA
     Dosage: 1070 MILLIGRAM
     Route: 041
     Dates: start: 20120601
  3. DEXAMETHASONE [Suspect]
     Indication: PLASMA CELL MYELOMA
     Dosage: 28 MILLIGRAM
     Route: 048
     Dates: start: 20120601
  4. DEXAMETHASONE [Suspect]
     Dosage: 8 MILLIGRAM
     Route: 041
     Dates: start: 20120601
  5. FLUCLOXACILLIN [Concomitant]
     Indication: PRODUCT USED FOR UNKNOWN INDICATION
     Route: 065
     Dates: start: 20120516, end: 20120529
  6. FLUCLOXACILLIN [Concomitant]
     Route: 065
     Dates: start: 20120517, end: 20120518
  7. FLUCLOXACILLIN [Concomitant]
     Route: 065
     Dates: start: 20120921
  8. LEVOTHYROXIN [Concomitant]
     Indication: HYPOTHYROIDISM
     Route: 065
  9. DALTEPARIN [Concomitant]
     Indication: PRODUCT USED FOR UNKNOWN INDICATION
     Route: 065
     Dates: start: 20120604, end: 20120605

REACTIONS (5)
  - Sepsis [Recovered/Resolved]
  - Urine output decreased [Unknown]
  - Chills [Unknown]
  - Pyrexia [Unknown]
  - Vomiting [Recovered/Resolved]
